FAERS Safety Report 6858826-0 (Version None)
Quarter: 2010Q3

REPORT INFORMATION
  Report Type: 
  Country: None (occurrence: None)
  Receive Date: 20100719
  Receipt Date: 20080313
  Transmission Date: 20110219
  Serious: Yes (Death, Other)
  Sender: FDA-Public Use
  Company Number: US-PFIZER INC-2008015811

PATIENT

DRUGS (2)
  1. CHANTIX [Suspect]
  2. LEXAPRO [Suspect]

REACTIONS (1)
  - COMPLETED SUICIDE [None]
